FAERS Safety Report 5004346-8 (Version None)
Quarter: 2006Q2

REPORT INFORMATION
  Report Type: 
  Country: None (occurrence: None)
  Receive Date: 20060517
  Receipt Date: 20060512
  Transmission Date: 20061013
  Serious: Yes (Hospitalization)
  Sender: FDA-Public Use
  Company Number: 2004A2000022

PATIENT
  Sex: Female
  Weight: 2.8 kg

DRUGS (2)
  1. ZIDOVUDINE [Suspect]
     Indication: PROPHYLAXIS AGAINST HIV INFECTION
     Dosage: 12MG TWICE PER DAY
     Route: 048
     Dates: start: 20040706
  2. NEVIRAPINE [Suspect]
     Indication: PROPHYLAXIS AGAINST HIV INFECTION
     Route: 048
     Dates: start: 20040706, end: 20040712

REACTIONS (1)
  - ISOIMMUNE HAEMOLYTIC DISEASE [None]
